FAERS Safety Report 22763381 (Version 2)
Quarter: 2024Q1

REPORT INFORMATION
  Report Type: Spontaneous
  Country: IL (occurrence: IL)
  Receive Date: 20230730
  Receipt Date: 20240129
  Transmission Date: 20240410
  Serious: Yes (Other)
  Sender: FDA-Public Use
  Company Number: IL-009507513-2306ISR012094

PATIENT
  Sex: Female

DRUGS (2)
  1. PEMBROLIZUMAB [Suspect]
     Active Substance: PEMBROLIZUMAB
     Indication: Colorectal cancer
     Dosage: UNK
     Dates: end: 2023
  2. PEMBROLIZUMAB [Suspect]
     Active Substance: PEMBROLIZUMAB
     Dosage: UNK
     Dates: start: 20230725

REACTIONS (4)
  - Febrile neutropenia [Unknown]
  - Malignant neoplasm progression [Unknown]
  - Lymphadenopathy [Recovering/Resolving]
  - Amylase increased [Not Recovered/Not Resolved]

NARRATIVE: CASE EVENT DATE: 20230701
